FAERS Safety Report 7588031-4 (Version None)
Quarter: 2011Q3

REPORT INFORMATION
  Report Type: 
  Country: None (occurrence: None)
  Receive Date: 20110705
  Receipt Date: 20110629
  Transmission Date: 20111222
  Serious: No
  Sender: FDA-Public Use
  Company Number: US-PFIZER INC-2011146022

PATIENT
  Sex: Male
  Weight: 87.075 kg

DRUGS (3)
  1. LIPITOR [Suspect]
     Indication: BLOOD CHOLESTEROL INCREASED
     Dosage: 20 MG, 1X/DAY
     Route: 048
     Dates: start: 20070101, end: 20110501
  2. MONOPRIL [Concomitant]
     Indication: HYPERTENSION
     Dosage: 3 MG, 2X/DAY
  3. ALLOPURINOL [Concomitant]
     Indication: BLOOD URIC ACID INCREASED
     Dosage: UNK

REACTIONS (1)
  - MUSCULAR WEAKNESS [None]
